FAERS Safety Report 19350940 (Version 1)
Quarter: 2021Q2

REPORT INFORMATION
  Report Type: Spontaneous
  Country: US (occurrence: US)
  Receive Date: 20210531
  Receipt Date: 20210531
  Transmission Date: 20210717
  Serious: Yes (Other)
  Sender: FDA-Public Use
  Company Number: US-GLAXOSMITHKLINE-US2021GSK115027

PATIENT
  Sex: Female

DRUGS (4)
  1. RANITIDINE. [Suspect]
     Active Substance: RANITIDINE
     Dosage: 300 MG,TWICE DAILY
     Route: 065
     Dates: start: 200101, end: 201901
  2. RANITIDINE. [Suspect]
     Active Substance: RANITIDINE
     Indication: GASTROOESOPHAGEAL REFLUX DISEASE
     Dosage: 150 MG,TWICE DAILY
     Route: 065
     Dates: start: 200101, end: 201901
  3. RANITIDINE. [Suspect]
     Active Substance: RANITIDINE
     Dosage: 300 MG,TWICE DAILY
     Route: 065
     Dates: start: 200101, end: 201901
  4. RANITIDINE. [Suspect]
     Active Substance: RANITIDINE
     Indication: GASTROOESOPHAGEAL REFLUX DISEASE
     Dosage: 150 MG ,TWICE DAILY
     Route: 065
     Dates: start: 200101, end: 201901

REACTIONS (2)
  - Haematological malignancy [Unknown]
  - Lung neoplasm malignant [Unknown]
